FAERS Safety Report 5313533-0 (Version None)
Quarter: 2007Q2

REPORT INFORMATION
  Report Type: 
  Country: None (occurrence: None)
  Receive Date: 20070501
  Receipt Date: 20060421
  Transmission Date: 20071010
  Serious: No
  Sender: FDA-Public Use
  Company Number: 2006UW07194

PATIENT
  Sex: Male

DRUGS (2)
  1. ENTOCORT [Suspect]
     Indication: CROHN'S DISEASE
     Route: 048
  2. ENTOCORT [Suspect]
     Route: 048

REACTIONS (1)
  - PLANTAR FASCIITIS [None]
